FAERS Safety Report 4308487-X (Version None)
Quarter: 2004Q1

REPORT INFORMATION
  Report Type: 
  Country: None (occurrence: None)
  Receive Date: 20040301
  Receipt Date: 20031205
  Transmission Date: 20041129
  Serious: Yes (Hospitalization)
  Sender: FDA-Public Use
  Company Number: PHNU2003DE04324

PATIENT
  Age: 91 Year
  Sex: Female
  Weight: 75 kg

DRUGS (6)
  1. ULTRACORTENOL GL (NVO) [Suspect]
     Indication: CATARACT OPERATION
     Dosage: 1 DF, QID
     Dates: start: 20031126, end: 20031130
  2. ULTRACORTENOL GL (NVO) [Suspect]
     Dosage: 1 DF, QH
  3. ULTRACORTENOL GL (NVO) [Suspect]
     Dates: start: 20031116, end: 20031125
  4. ASS ^CT-ARZNEIMITTEL^ [Concomitant]
     Dosage: 100 MG, QD
  5. ISOKET [Concomitant]
  6. DYNORM [Concomitant]

REACTIONS (6)
  - ABNORMAL SENSATION IN EYE [None]
  - CORNEAL DEPOSITS [None]
  - EYE INFLAMMATION [None]
  - EYE PAIN [None]
  - HEADACHE [None]
  - VISUAL ACUITY REDUCED [None]
